FAERS Safety Report 4688823-5 (Version None)
Quarter: 2005Q2

REPORT INFORMATION
  Report Type: 
  Country: None (occurrence: None)
  Receive Date: 20050613
  Receipt Date: 20041203
  Transmission Date: 20051028
  Serious: Yes (Other)
  Sender: FDA-Public Use
  Company Number: GB-GLAXOSMITHKLINE-B0359428A

PATIENT
  Sex: Male

DRUGS (7)
  1. SEROXAT [Suspect]
     Route: 065
     Dates: start: 19980101
  2. CITALOPRAM [Suspect]
  3. ACETAMINOPHEN [Suspect]
     Route: 065
  4. ALCOHOL [Suspect]
     Route: 065
  5. IBUPROFEN [Suspect]
     Route: 065
  6. ANTIBIOTICS [Suspect]
     Route: 065
  7. PSEUDOEPHEDRINE HCL [Suspect]
     Route: 065

REACTIONS (9)
  - ANXIETY [None]
  - DIZZINESS [None]
  - DRUG WITHDRAWAL SYNDROME [None]
  - INTENTIONAL MISUSE [None]
  - MULTIPLE DRUG OVERDOSE [None]
  - NAUSEA [None]
  - PALPITATIONS [None]
  - SENSORY DISTURBANCE [None]
  - TREMOR [None]
